FAERS Safety Report 19766766 (Version 1)
Quarter: 2021Q3

REPORT INFORMATION
  Report Type: Spontaneous
  Country: US (occurrence: US)
  Receive Date: 20210831
  Receipt Date: 20210831
  Transmission Date: 20211014
  Serious: No
  Sender: FDA-Public Use
  Company Number: US-TARO-2020TAR01428

PATIENT

DRUGS (1)
  1. CLOBETASOL PROPIONATE OINTMENT USP 0.05% [Suspect]
     Active Substance: CLOBETASOL PROPIONATE
     Indication: VULVOVAGINAL PRURITUS
     Dosage: QD, THIN AMOUNT OUTSIDE THE VAGINAL AREA ONCE DAILY
     Route: 061
     Dates: start: 202008

REACTIONS (2)
  - Disease recurrence [Unknown]
  - Off label use [Unknown]
